FAERS Safety Report 6021873-5 (Version None)
Quarter: 2008Q4

REPORT INFORMATION
  Report Type: 
  Country: None (occurrence: None)
  Receive Date: 20081229
  Receipt Date: 20081218
  Transmission Date: 20090506
  Serious: Yes (Other)
  Sender: FDA-Public Use
  Company Number: GB-AMGEN-US314171

PATIENT
  Sex: Male
  Weight: 65 kg

DRUGS (10)
  1. ENBREL [Suspect]
     Indication: RHEUMATOID ARTHRITIS
     Dosage: 50MG, FREQUENCY UNSPECIFIED
     Route: 058
     Dates: start: 20080701
  2. SULFASALAZINE [Concomitant]
     Indication: RHEUMATOID ARTHRITIS
     Route: 048
  3. PREDNISOLONE [Concomitant]
     Indication: RHEUMATOID ARTHRITIS
     Route: 048
     Dates: start: 20081005
  4. PREDNISOLONE [Concomitant]
     Indication: TEMPORAL ARTERITIS
  5. CALCEOS [Concomitant]
     Route: 048
  6. FOLIC ACID [Concomitant]
     Indication: RHEUMATOID ARTHRITIS
     Route: 048
  7. ACETYLSALICYLIC ACID SRT [Concomitant]
     Indication: TEMPORAL ARTERITIS
     Route: 048
  8. ALENDRONIC ACID [Concomitant]
     Route: 048
  9. METHOTREXATE [Concomitant]
     Indication: RHEUMATOID ARTHRITIS
     Route: 048
  10. INSULIN [Concomitant]
     Dosage: UNKNOWN

REACTIONS (4)
  - C-REACTIVE PROTEIN INCREASED [None]
  - HEADACHE [None]
  - PULMONARY EMBOLISM [None]
  - TEMPORAL ARTERITIS [None]
